FAERS Safety Report 5671953-9 (Version None)
Quarter: 2008Q1

REPORT INFORMATION
  Report Type: 
  Country: None (occurrence: None)
  Receive Date: 20080319
  Receipt Date: 20080311
  Transmission Date: 20080703
  Serious: Yes (Hospitalization)
  Sender: FDA-Public Use
  Company Number: FR-WYE-G01227208

PATIENT
  Sex: Female

DRUGS (2)
  1. EFFEXOR [Suspect]
     Dosage: 75 MG TOTAL DAILY
     Route: 048
     Dates: end: 20071228
  2. TERALITHE [Suspect]
     Indication: BIPOLAR DISORDER
     Dosage: 600 MG TOTAL DAILY
     Route: 048
     Dates: end: 20071228

REACTIONS (10)
  - ABNORMAL BEHAVIOUR [None]
  - ACUTE PRERENAL FAILURE [None]
  - AGITATION [None]
  - BLADDER DISTENSION [None]
  - BLOOD SODIUM INCREASED [None]
  - CHILLS [None]
  - CONFUSIONAL STATE [None]
  - DEHYDRATION [None]
  - DYSPEPSIA [None]
  - OVERDOSE [None]
